FAERS Safety Report 23427530 (Version 1)
Quarter: 2024Q1

REPORT INFORMATION
  Report Type: Spontaneous
  Country: US (occurrence: US)
  Receive Date: 20240122
  Receipt Date: 20240122
  Transmission Date: 20240410
  Serious: Yes (Hospitalization, Other)
  Sender: FDA-Public Use
  Company Number: US-TEVA-VS-3135557

PATIENT
  Age: 8 Decade

DRUGS (8)
  1. PACLITAXEL [Suspect]
     Active Substance: PACLITAXEL
     Indication: Mediastinum neoplasm
     Dosage: (THIRD CYCLE)
     Route: 065
  2. PACLITAXEL [Suspect]
     Active Substance: PACLITAXEL
     Indication: Mediastinum neoplasm
     Dosage: (SECOND CYCLE)
     Route: 065
  3. DABRAFENIB [Suspect]
     Active Substance: DABRAFENIB
     Indication: Mediastinum neoplasm
     Dosage: VIA GASTROSTOMY TUBE (RECEIVED AS EXTEMPORANEOUS SUSPENSIONS)
     Route: 065
  4. DABRAFENIB [Suspect]
     Active Substance: DABRAFENIB
     Indication: Mediastinum neoplasm
     Route: 048
  5. TRAMETINIB [Suspect]
     Active Substance: TRAMETINIB
     Indication: Mediastinum neoplasm
     Route: 048
  6. TRAMETINIB [Suspect]
     Active Substance: TRAMETINIB
     Indication: Mediastinum neoplasm
     Dosage: VIA GASTROSTOMY TUBE (RECEIVED AS EXTEMPORANEOUS SUSPENSIONS)
     Route: 065
  7. CARBOPLATIN [Suspect]
     Active Substance: CARBOPLATIN
     Indication: Mediastinum neoplasm
     Dosage: (THIRD CYCLE)
     Route: 065
  8. CARBOPLATIN [Suspect]
     Active Substance: CARBOPLATIN
     Indication: Mediastinum neoplasm
     Dosage: AUC 5 (SECOND CYCLE)
     Route: 065

REACTIONS (4)
  - Incorrect dose administered [Unknown]
  - Product preparation error [Unknown]
  - Drug ineffective [Unknown]
  - Off label use [Unknown]
